FAERS Safety Report 18009025 (Version 1)
Quarter: 2020Q3

REPORT INFORMATION
  Report Type: Spontaneous
  Country: US (occurrence: US)
  Receive Date: 20200710
  Receipt Date: 20200710
  Transmission Date: 20201103
  Serious: Yes (Hospitalization, Other)
  Sender: FDA-Public Use
  Company Number: US-SAOL THERAPEUTICS-2019SAO00384

PATIENT
  Age: 36 Year
  Sex: Male
  Weight: 59.86 kg

DRUGS (3)
  1. ROXICODONE [Concomitant]
     Active Substance: OXYCODONE HYDROCHLORIDE
     Dosage: 30 MG, 6X/DAY
  2. LIORESAL [Suspect]
     Active Substance: BACLOFEN
     Indication: QUADRIPLEGIA
     Dosage: 250 ?G, \DAY
     Route: 037
     Dates: start: 20080107
  3. XARELTO [Concomitant]
     Active Substance: RIVAROXABAN
     Dosage: 20 MG, 1X/DAY

REACTIONS (7)
  - Hypophagia [Not Recovered/Not Resolved]
  - Implant site pain [Recovered/Resolved]
  - Implant site erosion [Recovered/Resolved]
  - Weight decreased [Recovered/Resolved]
  - Muscle spasticity [Unknown]
  - Skin irritation [Recovered/Resolved]
  - Depressed mood [Unknown]

NARRATIVE: CASE EVENT DATE: 201512
